FAERS Safety Report 6494573-5 (Version None)
Quarter: 2009Q4

REPORT INFORMATION
  Report Type: 
  Country: None (occurrence: None)
  Receive Date: 20091214
  Receipt Date: 20090304
  Transmission Date: 20100525
  Serious: No
  Sender: FDA-Public Use
  Company Number: US-BRISTOL-MYERS SQUIBB COMPANY-14529978

PATIENT
  Age: 10 Year
  Sex: Male

DRUGS (2)
  1. ABILIFY [Suspect]
     Indication: CYCLOTHYMIC DISORDER
     Dates: end: 20090303
  2. ABILIFY [Suspect]
     Indication: ATTENTION DEFICIT/HYPERACTIVITY DISORDER
     Dates: end: 20090303

REACTIONS (1)
  - RASH [None]
